FAERS Safety Report 5099191-1 (Version None)
Quarter: 2006Q3

REPORT INFORMATION
  Report Type: 
  Country: None (occurrence: None)
  Receive Date: 20060728
  Receipt Date: 20060329
  Transmission Date: 20061208
  Serious: No
  Sender: FDA-Public Use
  Company Number: COT_0539_2006

PATIENT
  Age: 63 Year
  Sex: Male
  Weight: 161.0269 kg

DRUGS (18)
  1. VENTAVIS [Suspect]
     Indication: PULMONARY HYPERTENSION
     Dosage: 2.5 MCG ONCE IH
     Route: 055
     Dates: start: 20060224, end: 20060224
  2. VENTAVIS [Suspect]
     Indication: PULMONARY HYPERTENSION
     Dosage: 5 MCG 6TO7X/DAY IH
     Route: 055
     Dates: start: 20060224
  3. ACTIMMUNE [Concomitant]
  4. PLAVIX [Concomitant]
  5. FUROSEMIDE [Concomitant]
  6. LOVASTATIN [Concomitant]
  7. POTASSIUM CHLORIDE [Concomitant]
  8. RANITIDINE HYDROCHLORIDE [Concomitant]
  9. METOPROLOL TARTRATE [Concomitant]
  10. NIASPAN [Concomitant]
  11. LISINOPRIL [Concomitant]
  12. CLONIDINE HCL [Concomitant]
  13. ISOSORBIDE DINITRATE [Concomitant]
  14. SPIRONOLACTONE [Concomitant]
  15. NIFEDIPINE [Concomitant]
  16. NOVOLOG [Concomitant]
  17. LANTUS [Concomitant]
  18. PROTONIX [Concomitant]

REACTIONS (3)
  - COUGH [None]
  - NAUSEA [None]
  - THIRST [None]
